FAERS Safety Report 6607141-9 (Version None)
Quarter: 2010Q1

REPORT INFORMATION
  Report Type: 
  Country: None (occurrence: None)
  Receive Date: 20100212
  Receipt Date: 20091207
  Transmission Date: 20100710
  Serious: Yes (Other)
  Sender: FDA-Public Use
  Company Number: 1000010671

PATIENT
  Age: 70 Year
  Sex: Female

DRUGS (17)
  1. SAVELLA [Suspect]
     Indication: FIBROMYALGIA
     Dosage: 12.5 MG (12.5 MG, 1 IN 1 D), ORAL
     Route: 048
     Dates: start: 20090929, end: 20090929
  2. SAVELLA [Suspect]
     Indication: FIBROMYALGIA
     Dosage: 25 MG (12.5 MG, 1 IN 1 D), ORAL
     Route: 048
     Dates: start: 20090930, end: 20091001
  3. ATIVAN [Concomitant]
  4. CALCIUM [Concomitant]
  5. CARTIA XT [Concomitant]
  6. DIOVAN [Concomitant]
  7. DYAZIDE [Concomitant]
  8. HALCION [Concomitant]
  9. LIDODERM [Concomitant]
  10. LOVASTATIN [Concomitant]
  11. MOBIC [Concomitant]
  12. NASONEX [Concomitant]
  13. NIACIN [Concomitant]
  14. PRILOSEC [Concomitant]
  15. SYNTHROID [Concomitant]
  16. VICODIN [Concomitant]
  17. VITAMIN TAB [Concomitant]

REACTIONS (1)
  - SEROTONIN SYNDROME [None]
